FAERS Safety Report 10245351 (Version 2)
Quarter: 2014Q2

REPORT INFORMATION
  Report Type: Report from Study
  Country: FR (occurrence: FR)
  Receive Date: 20140618
  Receipt Date: 20140623
  Transmission Date: 20141212
  Serious: No
  Sender: FDA-Public Use
  Company Number: FR-ROCHE-1418357

PATIENT
  Age: 54 Year
  Sex: Female
  Weight: 59 kg

DRUGS (16)
  1. TRASTUZUMAB EMTANSINE [Suspect]
     Indication: BREAST CANCER
     Dosage: LAST DOSE ON 28/MAY/2014
     Route: 042
     Dates: start: 20120119
  2. MYOLASTAN [Concomitant]
     Indication: MYALGIA
     Route: 065
     Dates: start: 201210, end: 201211
  3. MYOLASTAN [Concomitant]
     Indication: MYALGIA
     Route: 065
     Dates: start: 20120503, end: 201207
  4. SEROPLEX [Concomitant]
     Indication: DEPRESSION
     Route: 065
     Dates: start: 201110
  5. RIVOTRIL [Concomitant]
     Indication: METASTATIC PAIN
     Route: 065
     Dates: end: 201207
  6. INNOHEP [Concomitant]
     Indication: THROMBOSIS PROPHYLAXIS
     Route: 065
     Dates: end: 201207
  7. ZOMETA [Concomitant]
     Indication: METASTASES TO BONE
     Route: 065
     Dates: start: 20120213
  8. STILNOX [Concomitant]
     Indication: PROPHYLAXIS
     Route: 065
     Dates: start: 20120313
  9. ABSTRAL [Concomitant]
     Indication: PAIN
     Route: 065
     Dates: start: 20120228, end: 201204
  10. ATARAX [Concomitant]
     Indication: DEPRESSION
     Route: 065
     Dates: start: 201204, end: 201209
  11. MAXILASE [Concomitant]
     Indication: COUGH
     Route: 065
     Dates: start: 201209, end: 201210
  12. TIORFAN [Concomitant]
     Indication: DIARRHOEA
     Route: 065
     Dates: start: 201210, end: 201212
  13. LEXOMIL [Concomitant]
     Indication: DEPRESSION
     Route: 065
     Dates: start: 20130601
  14. DOLIPRANE [Concomitant]
     Indication: HEADACHE
     Route: 065
     Dates: start: 20131101
  15. PLACEBO [Suspect]
     Indication: BREAST CANCER
     Dosage: LOADING DOSE
     Route: 042
     Dates: start: 20120119
  16. PLACEBO [Suspect]
     Dosage: MAINTAINENCE DOSE. LAST DOSE ON 28/MAY/2014
     Route: 042

REACTIONS (1)
  - Hepatitis [Not Recovered/Not Resolved]
